FAERS Safety Report 8701995 (Version 3)
Quarter: 2012Q4

REPORT INFORMATION
  Report Type: Report from Study
  Country: US (occurrence: US)
  Receive Date: 20120803
  Receipt Date: 20120918
  Transmission Date: 20130627
  Serious: Yes (Hospitalization)
  Sender: FDA-Public Use
  Company Number: US-JNJFOC-20120714581

PATIENT
  Age: 47 Year
  Sex: Male
  Weight: 86.18 kg

DRUGS (3)
  1. INFLIXIMAB, RECOMBINANT [Suspect]
     Indication: PSORIASIS
     Route: 042
     Dates: start: 20060219, end: 20120508
  2. CORTICOSTEROIDS [Concomitant]
  3. TRIAMCINOLONE [Concomitant]
     Indication: PSORIASIS
     Dates: end: 20120613

REACTIONS (1)
  - Angina unstable [Recovered/Resolved]
